FAERS Safety Report 11399946 (Version 1)
Quarter: 2015Q3

REPORT INFORMATION
  Report Type: Spontaneous
  Country: BE (occurrence: BE)
  Receive Date: 20150820
  Receipt Date: 20150820
  Transmission Date: 20151125
  Serious: Yes (Death, Life-Threatening, Hospitalization, Disabling)
  Sender: FDA-Public Use
  Company Number: BE-ARIAD PHARMACEUTICALS, INC-2015BE005358

PATIENT
  Age: 65 Year
  Sex: Female
  Weight: 56 kg

DRUGS (13)
  1. AMLOR [Concomitant]
     Active Substance: AMLODIPINE BESYLATE
     Indication: HYPERTENSION
     Dosage: 5 MG, QD
     Route: 048
     Dates: start: 20150511, end: 20150723
  2. LORMETAZEPAM [Concomitant]
     Active Substance: LORMETAZEPAM
     Indication: SLEEP DISORDER
     Dosage: 1 MG, QD
     Route: 048
     Dates: start: 20150628, end: 20150723
  3. MIRTAZEPINE [Concomitant]
     Indication: NERVOUSNESS
     Dosage: 30 MG, QD
     Route: 048
     Dates: start: 20150609, end: 20150723
  4. EMCONCOR MINOR [Concomitant]
     Indication: HYPERTENSION
     Dosage: 1.25 MG, QD
     Route: 048
     Dates: start: 20150511, end: 20150723
  5. EUSAPRIM FORTE [Concomitant]
     Active Substance: SULFAMETHOXAZOLE\TRIMETHOPRIM
     Indication: INFECTION PROPHYLAXIS
     Dosage: 800 MG, QOD
     Route: 048
     Dates: start: 20150517, end: 20150723
  6. ALPRAZOLAM. [Concomitant]
     Active Substance: ALPRAZOLAM
     Indication: NERVOUSNESS
     Dosage: 0.25 MG, BID
     Route: 048
     Dates: start: 20150511, end: 20150723
  7. ZANTAC [Concomitant]
     Active Substance: RANITIDINE HYDROCHLORIDE
     Indication: PROPHYLAXIS
     Dosage: 300 MG, QD
     Route: 048
     Dates: start: 20150512, end: 20150723
  8. DURAGESIC [Concomitant]
     Active Substance: FENTANYL
     Indication: PAIN
     Dosage: UNK UNK, TID
     Route: 062
     Dates: start: 20150529, end: 20150723
  9. ICLUSIG [Suspect]
     Active Substance: PONATINIB
     Indication: ACUTE LYMPHOCYTIC LEUKAEMIA
     Dosage: 45 MG, QD
     Route: 048
     Dates: start: 20150630, end: 20150723
  10. ACYCLOVIR. [Concomitant]
     Active Substance: ACYCLOVIR
     Indication: INFECTION PROPHYLAXIS
     Dosage: 400 MG, BID
     Route: 048
     Dates: start: 20150511, end: 20150723
  11. OXYNORM INSTANT [Concomitant]
     Indication: PAIN
     Dosage: 5 MG, PRN
     Route: 048
     Dates: start: 20150529, end: 20150723
  12. PROGRAFT [Concomitant]
     Active Substance: TACROLIMUS
     Indication: IMMUNOSUPPRESSION
     Dosage: 0.5 MG, BID
     Route: 048
     Dates: start: 20150630, end: 20150723
  13. ARIMIDEX [Concomitant]
     Active Substance: ANASTROZOLE
     Indication: CANCER HORMONAL THERAPY
     Dosage: 1 MG, QD
     Route: 048
     Dates: start: 20150511, end: 20150723

REACTIONS (2)
  - Sepsis [Fatal]
  - General physical health deterioration [Unknown]

NARRATIVE: CASE EVENT DATE: 20150702
